FAERS Safety Report 6758751-X (Version None)
Quarter: 2010Q2

REPORT INFORMATION
  Report Type: 
  Country: None (occurrence: None)
  Receive Date: 20100602
  Receipt Date: 20100518
  Transmission Date: 20101027
  Serious: Yes (Other)
  Sender: FDA-Public Use
  Company Number: 2009SP041343

PATIENT
  Age: 51 Year
  Sex: Female

DRUGS (14)
  1. MIRTAZAPINE [Suspect]
     Indication: DEPRESSIVE SYMPTOM
     Dosage: 3.75 MG;QD;PO
     Route: 048
     Dates: start: 20091201, end: 20091204
  2. SODIUM VALPROATE (CON.) [Concomitant]
  3. ZOLPIDEM TARTRATE (CON.) [Concomitant]
  4. QUAZEPAM (CON.) [Concomitant]
  5. ETIZOLAM (CON.) [Concomitant]
  6. TOLEDOMIN (CON.) [Concomitant]
  7. AMOXAN (CON.) [Concomitant]
  8. DEPROMEL (CON.) [Concomitant]
  9. TRIAZOLAM (CON.) [Concomitant]
  10. REBAMIPIDE (CON.) [Concomitant]
  11. SENNOSIDE (CON.) [Concomitant]
  12. AMLODIPINE BESILATE (CON.) [Concomitant]
  13. LOXOPROFEN SODIUM HYDRATE (CON.) [Concomitant]
  14. SODIUM VALPROATE (CON.) [Concomitant]

REACTIONS (4)
  - DEPRESSION [None]
  - FEELING JITTERY [None]
  - IMPULSIVE BEHAVIOUR [None]
  - UNRESPONSIVE TO STIMULI [None]
